FAERS Safety Report 14987641 (Version 24)
Quarter: 2022Q1

REPORT INFORMATION
  Report Type: Report from Study
  Country: NL (occurrence: NL)
  Receive Date: 20180608
  Receipt Date: 20220301
  Transmission Date: 20220423
  Serious: Yes (Hospitalization, Other)
  Sender: FDA-Public Use
  Company Number: NL-ABBVIE-16P-114-1816880-00

PATIENT
  Age: 74 Year
  Sex: Male

DRUGS (13)
  1. CARBIDOPA\LEVODOPA [Suspect]
     Active Substance: CARBIDOPA\LEVODOPA
     Indication: Parkinson^s disease
     Dosage: MD6, CD3.4, ED2, CND 2.8
     Route: 050
     Dates: start: 20150817
  2. CARBIDOPA\LEVODOPA [Suspect]
     Active Substance: CARBIDOPA\LEVODOPA
     Dosage: DOSE INCREASED
     Route: 050
  3. CARBIDOPA\LEVODOPA [Suspect]
     Active Substance: CARBIDOPA\LEVODOPA
     Dosage: MD: 6, CD: 2.6, ED: 2, CND: 2.6
     Route: 050
  4. CARBIDOPA\LEVODOPA [Suspect]
     Active Substance: CARBIDOPA\LEVODOPA
     Dosage: CD 3.4?DOSE INCREASED
     Route: 050
  5. CARBIDOPA\LEVODOPA [Suspect]
     Active Substance: CARBIDOPA\LEVODOPA
     Dosage: DOSE: MD: 6.0 CD: 3.4 ED: 2.0?NIGHT PUMP: CD: 2.8 ED: 2
     Route: 050
  6. CARBIDOPA\LEVODOPA [Suspect]
     Active Substance: CARBIDOPA\LEVODOPA
     Dosage: MD: 6, CD: 3.4, ED: 2, CND: 2.8, END: 2
     Route: 050
  7. CARBIDOPA\LEVODOPA [Suspect]
     Active Substance: CARBIDOPA\LEVODOPA
     Dosage: MD: 6.0, CD: 3.9, ED: 2.0, CND: 3.2, END: 2.0
     Route: 050
  8. CARBIDOPA\LEVODOPA [Suspect]
     Active Substance: CARBIDOPA\LEVODOPA
     Dosage: MD 6.0 CD 4.0 ED 2.0 CD NIGHT: 3.3 ED NIGHT: 2.0
     Route: 050
  9. CARBIDOPA\LEVODOPA [Suspect]
     Active Substance: CARBIDOPA\LEVODOPA
     Dosage: MD: 6.0 ML, CD: 4.0 ML/HR, ED: 2.0 ML, CND: 3.4 ML/HR, END: 2.0 ML
     Route: 050
  10. CARBIDOPA\LEVODOPA [Suspect]
     Active Substance: CARBIDOPA\LEVODOPA
     Dosage: MD: 6.0 ML, CD: 3.4 ML/HR, ED: 2.0 ML, CND: 2.4 ML/HR, END: 2.0 ML
     Route: 050
  11. CARBIDOPA\LEVODOPA [Suspect]
     Active Substance: CARBIDOPA\LEVODOPA
     Dosage: CD: 3.2 ML/H
     Route: 050
  12. CARBIDOPA\LEVODOPA [Suspect]
     Active Substance: CARBIDOPA\LEVODOPA
     Dosage: MD: 6.0ML, CD: 3.4ML/H, ED: 2.0ML, CND: 2.4ML/H, END: 2.0ML
     Route: 050
  13. CARBIDOPA\LEVODOPA [Suspect]
     Active Substance: CARBIDOPA\LEVODOPA
     Dosage: MD 6.0 ML; CD 3.7 ML/H; ED 3.0 ML; CND 2.4 ML/H; END 2.0 ML
     Route: 050

REACTIONS (66)
  - General physical health deterioration [Not Recovered/Not Resolved]
  - Inguinal hernia [Recovered/Resolved]
  - Seizure [Unknown]
  - Muscular weakness [Not Recovered/Not Resolved]
  - Feeling abnormal [Not Recovered/Not Resolved]
  - Underdose [Recovered/Resolved]
  - Impaired self-care [Not Recovered/Not Resolved]
  - Myalgia [Not Recovered/Not Resolved]
  - Hypophagia [Recovered/Resolved]
  - Defaecation disorder [Recovered/Resolved]
  - Incorrect dose administered [Not Recovered/Not Resolved]
  - Infrequent bowel movements [Recovered/Resolved]
  - Fluid intake reduced [Not Recovered/Not Resolved]
  - Product use issue [Not Recovered/Not Resolved]
  - Restlessness [Not Recovered/Not Resolved]
  - Screaming [Not Recovered/Not Resolved]
  - Balance disorder [Not Recovered/Not Resolved]
  - Mobility decreased [Not Recovered/Not Resolved]
  - Disturbance in attention [Not Recovered/Not Resolved]
  - Intentional product misuse [Unknown]
  - Pain in extremity [Not Recovered/Not Resolved]
  - Restlessness [Recovered/Resolved]
  - Musculoskeletal stiffness [Not Recovered/Not Resolved]
  - Abnormal faeces [Recovered/Resolved]
  - Faeces hard [Recovered/Resolved]
  - Parkinsonian gait [Not Recovered/Not Resolved]
  - Muscle spasms [Not Recovered/Not Resolved]
  - Tremor [Not Recovered/Not Resolved]
  - Gait disturbance [Not Recovered/Not Resolved]
  - Malaise [Recovered/Resolved]
  - Decreased appetite [Recovered/Resolved]
  - Weight decreased [Recovered/Resolved]
  - Weight decreased [Recovered/Resolved]
  - Weight increased [Recovered/Resolved]
  - Abnormal dreams [Not Recovered/Not Resolved]
  - Delusion [Not Recovered/Not Resolved]
  - Sleep disorder [Recovered/Resolved]
  - Orthostatic hypotension [Not Recovered/Not Resolved]
  - Constipation [Not Recovered/Not Resolved]
  - Pain [Not Recovered/Not Resolved]
  - Hallucination [Not Recovered/Not Resolved]
  - Middle insomnia [Recovered/Resolved]
  - Muscle rigidity [Not Recovered/Not Resolved]
  - Adverse drug reaction [Not Recovered/Not Resolved]
  - On and off phenomenon [Not Recovered/Not Resolved]
  - Dyskinesia [Not Recovered/Not Resolved]
  - Hyperkinesia [Not Recovered/Not Resolved]
  - Insomnia [Recovered/Resolved]
  - Freezing phenomenon [Not Recovered/Not Resolved]
  - Unevaluable event [Recovered/Resolved]
  - Stoma site erythema [Recovered/Resolved]
  - Stoma site pain [Recovered/Resolved]
  - Stoma site erythema [Not Recovered/Not Resolved]
  - Stoma site extravasation [Not Recovered/Not Resolved]
  - Stoma site discharge [Recovered/Resolved]
  - Therapeutic product effect variable [Recovered/Resolved]
  - Drug ineffective [Unknown]
  - Parkinson^s disease [Not Recovered/Not Resolved]
  - Device issue [Recovered/Resolved]
  - Memory impairment [Not Recovered/Not Resolved]
  - Panic reaction [Not Recovered/Not Resolved]
  - Reduced facial expression [Not Recovered/Not Resolved]
  - Speech disorder [Not Recovered/Not Resolved]
  - Infrequent bowel movements [Recovered/Resolved]
  - Scab [Recovered/Resolved]
  - Incorrect route of product administration [Unknown]

NARRATIVE: CASE EVENT DATE: 20161221
